FAERS Safety Report 11774376 (Version 7)
Quarter: 2016Q2

REPORT INFORMATION
  Report Type: Report from Study
  Country: GB (occurrence: GB)
  Receive Date: 20151124
  Receipt Date: 20160415
  Transmission Date: 20160815
  Serious: Yes (Hospitalization)
  Sender: FDA-Public Use
  Company Number: GB-EISAI MEDICAL RESEARCH-EC-2015-012186

PATIENT
  Age: 16 Year
  Sex: Male
  Weight: 51 kg

DRUGS (20)
  1. NUTRICIA MULTI FIBRE 1.5 [Concomitant]
  2. PARACETAMOL [Concomitant]
     Active Substance: ACETAMINOPHEN
  3. THYROXINE [Concomitant]
     Active Substance: LEVOTHYROXINE
  4. IBRUPROFEN [Concomitant]
     Active Substance: IBUPROFEN
  5. OXYCODONE HYDROCHLORIDE. [Concomitant]
     Active Substance: OXYCODONE HYDROCHLORIDE
  6. LENVATINIB [Suspect]
     Active Substance: LENVATINIB
     Route: 048
     Dates: start: 20150720, end: 20150805
  7. COTRIMOXAZOLE [Concomitant]
     Active Substance: SULFAMETHOXAZOLE\TRIMETHOPRIM
  8. LOPERAMIDE [Concomitant]
     Active Substance: LOPERAMIDE
  9. DOCUSATE [Concomitant]
     Active Substance: DOCUSATE
  10. FENTANYL TRANSDERMAL SYSTEM [Concomitant]
     Active Substance: FENTANYL
  11. CHLORPHENAMINE [Concomitant]
     Active Substance: CHLORPHENIRAMINE MALEATE
  12. LENVATINIB [Suspect]
     Active Substance: LENVATINIB
     Route: 048
     Dates: start: 20150707, end: 20150712
  13. CO AMOXICLAV [Concomitant]
     Active Substance: AMOXICILLIN\CLAVULANIC ACID
  14. DOMPERIDONE [Concomitant]
     Active Substance: DOMPERIDONE
  15. ONDANSETRON [Concomitant]
     Active Substance: ONDANSETRON
  16. LORAZEPAM. [Concomitant]
     Active Substance: LORAZEPAM
  17. OMEPRAZOLE. [Concomitant]
     Active Substance: OMEPRAZOLE
  18. LENVATINIB [Suspect]
     Active Substance: LENVATINIB
     Indication: NEOPLASM MALIGNANT
     Route: 048
     Dates: start: 20150608, end: 20150706
  19. LENVATINIB [Suspect]
     Active Substance: LENVATINIB
     Route: 048
     Dates: start: 20150811, end: 20151126
  20. ORAMORPH [Concomitant]
     Active Substance: MORPHINE SULFATE

REACTIONS (4)
  - Pyrexia [Recovered/Resolved]
  - Neck pain [Not Recovered/Not Resolved]
  - Back pain [Not Recovered/Not Resolved]
  - Musculoskeletal pain [Not Recovered/Not Resolved]

NARRATIVE: CASE EVENT DATE: 20151117
